FAERS Safety Report 8208814-7 (Version None)
Quarter: 2012Q1

REPORT INFORMATION
  Report Type: 
  Country: None (occurrence: None)
  Receive Date: 20120314
  Receipt Date: 20120308
  Transmission Date: 20120608
  Serious: Yes (Hospitalization)
  Sender: FDA-Public Use
  Company Number: US-PFIZER INC-2012062617

PATIENT
  Sex: Female
  Weight: 90.703 kg

DRUGS (5)
  1. ZESTRIL [Concomitant]
     Indication: HYPERTENSION
     Dosage: UNK
  2. TENORMIN [Concomitant]
     Indication: HYPERTENSION
     Dosage: UNK
  3. CELEBREX [Concomitant]
     Indication: PAIN
     Dosage: 30 MG, UNK
     Route: 048
  4. HALCION [Suspect]
     Indication: SLEEP DISORDER
     Dosage: 0.25 MG, 1X/DAY
     Route: 048
     Dates: start: 19810101
  5. HALCION [Suspect]
     Indication: SLEEP APNOEA SYNDROME

REACTIONS (3)
  - DRUG INEFFECTIVE [None]
  - ABDOMINAL PAIN UPPER [None]
  - HIP ARTHROPLASTY [None]
